FAERS Safety Report 4983388-2 (Version None)
Quarter: 2006Q2

REPORT INFORMATION
  Report Type: 
  Country: None (occurrence: None)
  Receive Date: 20060426
  Receipt Date: 20050627
  Transmission Date: 20061013
  Serious: Yes (Death, Hospitalization, Other)
  Sender: FDA-Public Use
  Company Number: US-MERCK-0506USA03777

PATIENT
  Age: 56 Year
  Sex: Female
  Weight: 59 kg

DRUGS (2)
  1. VIOXX [Suspect]
     Indication: ARTHRALGIA
     Route: 048
     Dates: start: 20010220, end: 20030912
  2. THEOPHYLLINE [Concomitant]
     Route: 065
     Dates: start: 20010603, end: 20010606

REACTIONS (8)
  - CEREBROVASCULAR ACCIDENT [None]
  - CHEST PAIN [None]
  - CHRONIC OBSTRUCTIVE PULMONARY DISEASE [None]
  - DEATH [None]
  - FALL [None]
  - HEADACHE [None]
  - HIATUS HERNIA [None]
  - HYPOAESTHESIA [None]
